FAERS Safety Report 13885448 (Version 17)
Quarter: 2020Q4

REPORT INFORMATION
  Report Type: Spontaneous
  Country: US (occurrence: US)
  Receive Date: 20170821
  Receipt Date: 20201125
  Transmission Date: 20210113
  Serious: No
  Sender: FDA-Public Use
  Company Number: US-PFIZER INC-2017356763

PATIENT
  Age: 70 Year
  Sex: Female
  Weight: 59 kg

DRUGS (19)
  1. XALKORI [Suspect]
     Active Substance: CRIZOTINIB
     Dosage: 250 MG, 1X/DAY (IN THE EVENING)
     Route: 048
     Dates: start: 20180107, end: 2018
  2. XARELTO [Concomitant]
     Active Substance: RIVAROXABAN
     Indication: HYPERCOAGULATION
     Dosage: 20 MG, 1X/DAY
     Route: 048
     Dates: start: 20160428, end: 2016
  3. SYNTHROID [Concomitant]
     Active Substance: LEVOTHYROXINE SODIUM
     Dosage: 37 UG, DAILY
  4. XALKORI [Suspect]
     Active Substance: CRIZOTINIB
     Indication: NON-SMALL CELL LUNG CANCER
     Dosage: 200 MG, 2X/DAY
     Route: 048
     Dates: start: 20170726, end: 2017
  5. XALKORI [Suspect]
     Active Substance: CRIZOTINIB
     Dosage: 250 MG, 2X/DAY
     Route: 048
     Dates: start: 2017, end: 20170906
  6. XALKORI [Suspect]
     Active Substance: CRIZOTINIB
     Dosage: 250 MG, 2X/DAY
     Route: 048
     Dates: start: 20171218, end: 20180106
  7. SYNTHROID [Concomitant]
     Active Substance: LEVOTHYROXINE SODIUM
     Indication: THYROID DISORDER
     Dosage: 37.5 UG, CYCLIC (CUTS A 25 UG IN HALF AND TAKES WITH HALF A 50 UG)
     Dates: start: 2014
  8. XALKORI [Suspect]
     Active Substance: CRIZOTINIB
     Dosage: 200 MG, 2X/DAY
     Route: 048
     Dates: start: 20170805, end: 2017
  9. XARELTO [Concomitant]
     Active Substance: RIVAROXABAN
     Indication: CEREBROVASCULAR ACCIDENT PROPHYLAXIS
     Dosage: 20 MG, DAILY
     Route: 048
     Dates: start: 201605, end: 2016
  10. XALKORI [Suspect]
     Active Substance: CRIZOTINIB
     Dosage: 400 MG, 1X/DAY
     Route: 048
     Dates: start: 2018
  11. XALKORI [Suspect]
     Active Substance: CRIZOTINIB
     Dosage: 200 MG, AS NEEDED
  12. SYNTHROID [Concomitant]
     Active Substance: LEVOTHYROXINE SODIUM
     Indication: HYPOTHYROIDISM
     Dosage: 50 UG, ONCE DAILY
     Dates: start: 2006
  13. SYNTHROID [Concomitant]
     Active Substance: LEVOTHYROXINE SODIUM
     Dosage: 50 UG, CYCLIC (FOR THE OTHER 2 DAYS PER WEEK)
     Dates: start: 2014
  14. NORTRIPTYLINE [Concomitant]
     Active Substance: NORTRIPTYLINE
     Indication: AURA
     Dosage: 10 MG, AS NEEDED
     Dates: start: 201605
  15. XANAX [Concomitant]
     Active Substance: ALPRAZOLAM
     Indication: INSOMNIA
     Dosage: UNK, ONCE DAILY (HALF OF 0.25 ONLY TAKEN AT NIGHT)
  16. XALKORI [Suspect]
     Active Substance: CRIZOTINIB
     Dosage: 250 MG, 2X/DAY
     Route: 048
     Dates: start: 2017, end: 2017
  17. XALKORI [Suspect]
     Active Substance: CRIZOTINIB
     Dosage: 200 MG, 1X/DAY
     Route: 048
  18. XALKORI [Suspect]
     Active Substance: CRIZOTINIB
     Dosage: 200 MG, DAILY
     Route: 048
  19. XARELTO [Concomitant]
     Active Substance: RIVAROXABAN
     Dosage: 10 MG, 1X/DAY
     Route: 048
     Dates: start: 2016

REACTIONS (32)
  - Off label use [Unknown]
  - Vomiting [Recovered/Resolved]
  - Photophobia [Recovered/Resolved]
  - Foreign body sensation in eyes [Not Recovered/Not Resolved]
  - Glossodynia [Not Recovered/Not Resolved]
  - Oral candidiasis [Not Recovered/Not Resolved]
  - Mucosal inflammation [Unknown]
  - Product use issue [Unknown]
  - Neoplasm progression [Not Recovered/Not Resolved]
  - Condition aggravated [Recovered/Resolved]
  - Joint swelling [Not Recovered/Not Resolved]
  - Chest pain [Recovered/Resolved]
  - Decreased appetite [Not Recovered/Not Resolved]
  - Balance disorder [Recovered/Resolved]
  - Migraine with aura [Recovered/Resolved]
  - Diarrhoea [Recovered/Resolved]
  - Ageusia [Recovered/Resolved]
  - Peripheral swelling [Not Recovered/Not Resolved]
  - Odynophagia [Recovered/Resolved]
  - Eye pain [Not Recovered/Not Resolved]
  - Hyperchlorhydria [Recovered/Resolved]
  - Hypoacusis [Recovered/Resolved]
  - Oesophageal pain [Recovered/Resolved]
  - Dry eye [Not Recovered/Not Resolved]
  - Aphthous ulcer [Not Recovered/Not Resolved]
  - Constipation [Unknown]
  - Enamel anomaly [Unknown]
  - Nausea [Recovered/Resolved]
  - Retching [Recovered/Resolved]
  - Dysphagia [Recovered/Resolved]
  - Dyspepsia [Recovered/Resolved]
  - Feeling abnormal [Recovered/Resolved]

NARRATIVE: CASE EVENT DATE: 201708
